FAERS Safety Report 13455611 (Version 1)
Quarter: 2017Q2

REPORT INFORMATION
  Report Type: Spontaneous
  Country: US (occurrence: US)
  Receive Date: 20170419
  Receipt Date: 20170419
  Transmission Date: 20170830
  Serious: No
  Sender: FDA-Public Use
  Company Number: US-PFIZER INC-2017167768

PATIENT
  Age: 15 Year
  Sex: Female
  Weight: 65.3 kg

DRUGS (4)
  1. GENOTROPIN [Suspect]
     Active Substance: SOMATROPIN
     Indication: TURNER^S SYNDROME
     Dosage: 2.2 MG, DAILY, (0.23 MG/KG/WK)
     Dates: start: 20150220
  2. GENOTROPIN [Suspect]
     Active Substance: SOMATROPIN
     Indication: MOSAICISM
  3. GENOTROPIN [Suspect]
     Active Substance: SOMATROPIN
     Indication: BODY HEIGHT BELOW NORMAL
  4. ESTRADIOL. [Concomitant]
     Active Substance: ESTRADIOL
     Indication: HYPOGONADISM FEMALE
     Dosage: 0.375 G, 1X/DAY FOR 3 WEEKS OUT OF 4 WEEKS
     Dates: start: 201601

REACTIONS (4)
  - Treatment noncompliance [Unknown]
  - Ceruloplasmin decreased [Unknown]
  - Liver function test abnormal [Unknown]
  - Drug ineffective [Unknown]

NARRATIVE: CASE EVENT DATE: 2015
